FAERS Safety Report 11229056 (Version 3)
Quarter: 2019Q2

REPORT INFORMATION
  Report Type: Spontaneous
  Country: US (occurrence: US)
  Receive Date: 20150630
  Receipt Date: 20190620
  Transmission Date: 20190711
  Serious: No
  Sender: FDA-Public Use
  Company Number: US-PFIZER INC-2015213204

PATIENT
  Sex: Female

DRUGS (2)
  1. AMIODARONE [Concomitant]
     Active Substance: AMIODARONE
     Dosage: UNK
  2. TIKOSYN [Suspect]
     Active Substance: DOFETILIDE
     Indication: ATRIAL FIBRILLATION
     Dosage: UNK

REACTIONS (6)
  - Therapeutic product effect incomplete [Unknown]
  - Infection [Unknown]
  - Cough [Unknown]
  - Cystitis [Unknown]
  - Headache [Unknown]
  - Malaise [Unknown]
